FAERS Safety Report 4653978-5 (Version None)
Quarter: 2005Q2

REPORT INFORMATION
  Report Type: 
  Country: None (occurrence: None)
  Receive Date: 20050404
  Receipt Date: 20050404
  Transmission Date: 20051028
  Serious: No
  Sender: FDA-Public Use
  Company Number: USA041284930

PATIENT
  Age: 43 Year
  Sex: Female
  Weight: 101 kg

DRUGS (6)
  1. CYMBALTA [Suspect]
     Indication: DEPRESSION
     Dosage: 60 MG DAY
     Dates: start: 20040902, end: 20041004
  2. HYDROCODONE [Concomitant]
  3. LASIX [Concomitant]
  4. LOTREL [Concomitant]
  5. WELLBUTRIN SR [Concomitant]
  6. TRAZODONE [Concomitant]

REACTIONS (1)
  - BLOOD PRESSURE INCREASED [None]
